FAERS Safety Report 19735354 (Version 1)
Quarter: 2021Q3

REPORT INFORMATION
  Report Type: Spontaneous
  Country: US (occurrence: US)
  Receive Date: 20210824
  Receipt Date: 20210824
  Transmission Date: 20211014
  Serious: No
  Sender: FDA-Public Use
  Company Number: US-OREXO US, INC.-ORE202009-000060

PATIENT
  Sex: Male

DRUGS (1)
  1. ZUBSOLV [Suspect]
     Active Substance: BUPRENORPHINE HYDROCHLORIDE\NALOXONE HYDROCHLORIDE
     Indication: ARTHRALGIA
     Dosage: ONE IN THE MORNING AND HALF TABLET IN THE EVENING
     Route: 060

REACTIONS (2)
  - Wrong technique in product usage process [Unknown]
  - Product use in unapproved indication [Unknown]
